FAERS Safety Report 20723363 (Version 2)
Quarter: 2022Q2

REPORT INFORMATION
  Report Type: Report from Study
  Country: RO (occurrence: RO)
  Receive Date: 20220419
  Receipt Date: 20220420
  Transmission Date: 20220720
  Serious: Yes (Hospitalization)
  Sender: FDA-Public Use
  Company Number: RO-ABBVIE-22K-135-4353942-00

PATIENT
  Age: 70 Year
  Sex: Female

DRUGS (2)
  1. CARBIDOPA\LEVODOPA [Suspect]
     Active Substance: CARBIDOPA\LEVODOPA
     Indication: Parkinson^s disease
     Dosage: DM 4.50 DC 3.20 ED 1.60 NRED 1, DMN 0.00 DCN 0.00 EDN 0.00 NREDN 0
     Route: 050
     Dates: start: 20180918
  2. CARBIDOPA\LEVODOPA [Suspect]
     Active Substance: CARBIDOPA\LEVODOPA

REACTIONS (2)
  - COVID-19 [Recovered/Resolved]
  - Abdominal wall infection [Recovered/Resolved]

NARRATIVE: CASE EVENT DATE: 20220406
